FAERS Safety Report 4939953-1 (Version None)
Quarter: 2006Q1

REPORT INFORMATION
  Report Type: 
  Country: None (occurrence: None)
  Receive Date: 20060310
  Receipt Date: 20060303
  Transmission Date: 20060701
  Serious: Yes (Life-Threatening)
  Sender: FDA-Public Use
  Company Number: GR-GLAXOSMITHKLINE-B0415280A

PATIENT
  Age: 78 Year
  Sex: Female

DRUGS (1)
  1. TIMENTIN [Suspect]
     Indication: ILEUS
     Dosage: 5.2G UNKNOWN
     Route: 042
     Dates: start: 20060201, end: 20060201

REACTIONS (3)
  - ANAPHYLACTIC SHOCK [None]
  - BLOOD PRESSURE DECREASED [None]
  - LOSS OF CONSCIOUSNESS [None]
